FAERS Safety Report 12313881 (Version 1)
Quarter: 2016Q2

REPORT INFORMATION
  Report Type: Spontaneous
  Country: US (occurrence: US)
  Receive Date: 20160428
  Receipt Date: 20160428
  Transmission Date: 20160815
  Serious: No
  Sender: FDA-Public Use
  Company Number: US-BAUSCH-BL-2016-001271

PATIENT
  Age: 45 Year
  Sex: Female

DRUGS (1)
  1. ZYCLARA [Suspect]
     Active Substance: IMIQUIMOD
     Indication: BOWEN^S DISEASE
     Route: 061
     Dates: start: 20160102

REACTIONS (6)
  - Heart rate increased [Recovered/Resolved]
  - Influenza like illness [Recovered/Resolved]
  - Pain [Recovered/Resolved]
  - Off label use [Unknown]
  - Unevaluable event [Recovered/Resolved]
  - Atrophy [Recovered/Resolved]

NARRATIVE: CASE EVENT DATE: 201601
